FAERS Safety Report 16157215 (Version 2)
Quarter: 2020Q2

REPORT INFORMATION
  Report Type: Spontaneous
  Country: US (occurrence: US)
  Receive Date: 20190404
  Receipt Date: 20200430
  Transmission Date: 20200713
  Serious: No
  Sender: FDA-Public Use
  Company Number: US-TEVA-2019-US-1025811

PATIENT
  Sex: Female

DRUGS (8)
  1. PRILOSEC [Concomitant]
     Active Substance: OMEPRAZOLE MAGNESIUM
     Dosage: 40 MILLIGRAM DAILY;
  2. TOPROL XL [Concomitant]
     Active Substance: METOPROLOL SUCCINATE
     Dosage: 90 MILLIGRAM DAILY;
  3. XARELTO [Concomitant]
     Active Substance: RIVAROXABAN
  4. WARFARIN SODIUM. [Suspect]
     Active Substance: WARFARIN SODIUM
     Route: 065
  5. LEVOTHYROXINE. [Concomitant]
     Active Substance: LEVOTHYROXINE
     Dosage: 88 MILLIGRAM DAILY;
  6. VEREPAMIL [Concomitant]
     Dosage: 240 MILLIGRAM DAILY;
  7. IPECACUANHA [Concomitant]
     Active Substance: IPECAC
  8. ADAVIR [Concomitant]
     Dosage: 500 MILLIGRAM DAILY; PUFF

REACTIONS (4)
  - Drug hypersensitivity [Unknown]
  - Rash [Recovered/Resolved]
  - Peripheral swelling [Unknown]
  - Erythema [Unknown]
